FAERS Safety Report 6667749-1 (Version None)
Quarter: 2010Q2

REPORT INFORMATION
  Report Type: 
  Country: None (occurrence: None)
  Receive Date: 20100405
  Receipt Date: 20100326
  Transmission Date: 20101027
  Serious: Yes (Other)
  Sender: FDA-Public Use
  Company Number: US-PFIZER INC-2010015089

PATIENT
  Sex: Female
  Weight: 107 kg

DRUGS (3)
  1. CADUET [Suspect]
     Indication: HYPERTENSION
     Dosage: 5 MG/10 MG
     Route: 048
     Dates: start: 20100126, end: 20100202
  2. CADUET [Suspect]
     Indication: HYPERLIPIDAEMIA
  3. CLONIDINE [Concomitant]
     Indication: HYPERTENSION
     Dosage: 0.1 MG, UNK

REACTIONS (2)
  - BLISTER [None]
  - EYE SWELLING [None]
